FAERS Safety Report 24894619 (Version 1)
Quarter: 2025Q1

REPORT INFORMATION
  Report Type: Spontaneous
  Country: US (occurrence: None)
  Receive Date: 20250127
  Receipt Date: 20250127
  Transmission Date: 20250408
  Serious: Yes (Life-Threatening, Hospitalization)
  Sender: FDA-CTU
  Company Number: None

PATIENT
  Age: 42 Year
  Sex: Female
  Weight: 65.7 kg

DRUGS (3)
  1. MONOFERRIC [Suspect]
     Active Substance: FERRIC DERISOMALTOSE
     Indication: Iron deficiency
     Dates: start: 20241015, end: 20241015
  2. Mary Ruth^s liquid multivitamin [Concomitant]
  3. PROBIOTICS NOS [Concomitant]
     Active Substance: PROBIOTICS NOS

REACTIONS (13)
  - Dizziness [None]
  - Vision blurred [None]
  - Feeling abnormal [None]
  - Infusion related reaction [None]
  - Vomiting [None]
  - Throat tightness [None]
  - Hyperhidrosis [None]
  - Palpitations [None]
  - Abdominal pain upper [None]
  - Headache [None]
  - Dyspnoea [None]
  - Diarrhoea [None]
  - Swelling face [None]

NARRATIVE: CASE EVENT DATE: 20241015
